FAERS Safety Report 26089731 (Version 1)
Quarter: 2025Q4

REPORT INFORMATION
  Report Type: Report from Study
  Country: CA (occurrence: CA)
  Receive Date: 20251125
  Receipt Date: 20251125
  Transmission Date: 20260118
  Serious: Yes (Other)
  Sender: ABBVIE
  Company Number: CA-ABBVIE-6557976

PATIENT
  Age: 46 Year
  Sex: Female

DRUGS (1)
  1. SKYRIZI [Suspect]
     Active Substance: RISANKIZUMAB-RZAA
     Indication: Crohn^s disease
     Route: 042

REACTIONS (12)
  - Intestinal obstruction [Unknown]
  - Vomiting [Unknown]
  - Arthralgia [Recovered/Resolved]
  - Frequent bowel movements [Recovering/Resolving]
  - Abdominal distension [Unknown]
  - Abdominal rigidity [Unknown]
  - Swelling [Unknown]
  - Constipation [Unknown]
  - Pain [Unknown]
  - Discomfort [Recovering/Resolving]
  - Fistula [Recovering/Resolving]
  - Myalgia [Recovered/Resolved]
